FAERS Safety Report 5164540-2 (Version None)
Quarter: 2006Q4

REPORT INFORMATION
  Report Type: 
  Country: None (occurrence: None)
  Receive Date: 20061205
  Receipt Date: 20061130
  Transmission Date: 20070319
  Serious: Yes (Life-Threatening)
  Sender: FDA-Public Use
  Company Number: 2006CG01962

PATIENT
  Age: 0 Day
  Sex: Female
  Weight: 2 kg

DRUGS (4)
  1. OMEPRAZOLE [Suspect]
     Route: 064
     Dates: start: 20060613, end: 20061015
  2. ASPEGIC 1000 [Suspect]
     Route: 064
     Dates: start: 20060613, end: 20061015
  3. MICROVAL [Suspect]
     Indication: CONTRACEPTION
     Route: 064
     Dates: end: 20060613
  4. TRACLEER [Suspect]
     Indication: SCLERODERMA
     Route: 064
     Dates: start: 20060301, end: 20060301

REACTIONS (6)
  - CAESAREAN SECTION [None]
  - DRUG EXPOSURE DURING PREGNANCY [None]
  - FOETAL ARRHYTHMIA [None]
  - FOETAL GROWTH RETARDATION [None]
  - NEONATAL RESPIRATORY DISTRESS SYNDROME [None]
  - PREMATURE BABY [None]
